FAERS Safety Report 25101471 (Version 1)
Quarter: 2025Q1

REPORT INFORMATION
  Report Type: Spontaneous
  Country: FR (occurrence: FR)
  Receive Date: 20250320
  Receipt Date: 20250320
  Transmission Date: 20250409
  Serious: Yes (Other)
  Sender: PFIZER
  Company Number: None

PATIENT
  Age: 59 Year
  Sex: Male
  Weight: 86.8 kg

DRUGS (3)
  1. CYTARABINE [Suspect]
     Active Substance: CYTARABINE
     Indication: Acute myeloid leukaemia
     Dosage: 400MGX1/DAY
     Route: 042
     Dates: start: 20250223, end: 20250301
  2. ICLUSIG [Concomitant]
     Active Substance: PONATINIB HYDROCHLORIDE
     Indication: Acute myeloid leukaemia
     Dosage: 45MGX1/DAY
     Route: 048
     Dates: start: 20250222, end: 20250228
  3. HYDREA [Concomitant]
     Active Substance: HYDROXYUREA
     Indication: Acute myeloid leukaemia
     Dosage: 4500MG/DAY
     Route: 048
     Dates: start: 20250219, end: 20250225

REACTIONS (2)
  - Toxic skin eruption [Not Recovered/Not Resolved]
  - Palmar-plantar erythrodysaesthesia syndrome [Not Recovered/Not Resolved]

NARRATIVE: CASE EVENT DATE: 20250226
